FAERS Safety Report 5418962-2 (Version None)
Quarter: 2007Q3

REPORT INFORMATION
  Report Type: 
  Country: None (occurrence: None)
  Receive Date: 20070817
  Receipt Date: 20070808
  Transmission Date: 20080115
  Serious: Yes (Other)
  Sender: FDA-Public Use
  Company Number: JP-PFIZER INC-2007066171

PATIENT
  Sex: Female

DRUGS (4)
  1. AZULFIDINE EN-TABS [Suspect]
     Route: 048
  2. SHIOSOL [Suspect]
  3. FLOMOX [Suspect]
  4. ANTIBIOTICS [Suspect]
     Indication: NASOPHARYNGITIS

REACTIONS (1)
  - DRUG ERUPTION [None]
